FAERS Safety Report 24608312 (Version 2)
Quarter: 2025Q3

REPORT INFORMATION
  Report Type: Spontaneous
  Country: JP (occurrence: JP)
  Receive Date: 20241112
  Receipt Date: 20250803
  Transmission Date: 20251021
  Serious: Yes (Other)
  Sender: ALEXION PHARMACEUTICALS
  Company Number: JP-ASTRAZENECA-240117828_011620_P_1

PATIENT
  Age: 7 Decade
  Sex: Female

DRUGS (2)
  1. LYNPARZA [Suspect]
     Active Substance: OLAPARIB
     Indication: Ovarian cancer
  2. LYNPARZA [Suspect]
     Active Substance: OLAPARIB
     Dosage: 200 MILLIGRAM, BID
     Dates: start: 202407

REACTIONS (4)
  - Myelosuppression [Unknown]
  - Malaise [Unknown]
  - Dyspnoea [Unknown]
  - Physical deconditioning [Unknown]
